FAERS Safety Report 10196092 (Version 1)
Quarter: 2014Q2

REPORT INFORMATION
  Report Type: Spontaneous
  Country: US (occurrence: US)
  Receive Date: 20140527
  Receipt Date: 20140527
  Transmission Date: 20141212
  Serious: Yes (Hospitalization)
  Sender: FDA-Public Use
  Company Number: US-AMGEN INC.-USASP2014038667

PATIENT
  Age: 73 Year
  Sex: Female

DRUGS (1)
  1. ENBREL [Suspect]
     Indication: RHEUMATOID ARTHRITIS
     Dosage: UNK UNK, QWK
     Route: 065
     Dates: start: 20071221

REACTIONS (6)
  - Fall [Recovered/Resolved]
  - Femur fracture [Recovered/Resolved]
  - Gait disturbance [Unknown]
  - Limb crushing injury [Recovered/Resolved]
  - Back pain [Unknown]
  - Impaired healing [Recovered/Resolved]
